FAERS Safety Report 4970000-1 (Version None)
Quarter: 2006Q1

REPORT INFORMATION
  Report Type: 
  Country: None (occurrence: None)
  Receive Date: 20060202
  Receipt Date: 20051014
  Transmission Date: 20060701
  Serious: Yes (Hospitalization)
  Sender: FDA-Public Use
  Company Number: US-2005-021350

PATIENT
  Age: 25 Year
  Sex: Female

DRUGS (1)
  1. MIRENA [Suspect]
     Indication: CONTRACEPTION
     Dosage: 20 UG/DAY  INTRAUTERINE
     Route: 015
     Dates: start: 20040701

REACTIONS (3)
  - AMENORRHOEA [None]
  - DYSPAREUNIA [None]
  - OVARIAN CYST [None]
